FAERS Safety Report 19949405 (Version 1)
Quarter: 2021Q4

REPORT INFORMATION
  Report Type: Spontaneous
  Country: DE (occurrence: CN)
  Receive Date: 20211013
  Receipt Date: 20211013
  Transmission Date: 20220303
  Serious: Yes (Hospitalization)
  Sender: FDA-Public Use
  Company Number: CN-MERCK HEALTHCARE KGAA-9270168

PATIENT
  Age: 64 Year
  Sex: Male
  Weight: 59 kg

DRUGS (7)
  1. ERBITUX [Suspect]
     Active Substance: CETUXIMAB
     Indication: Rectal cancer metastatic
     Dosage: 800 MG, UNK
     Route: 041
     Dates: start: 20210912
  2. FLUOROURACIL [Suspect]
     Active Substance: FLUOROURACIL
     Indication: Rectal cancer metastatic
     Dosage: 0.625 ML, UNKNOWN
     Route: 041
     Dates: start: 20210909, end: 20210909
  3. FLUOROURACIL [Suspect]
     Active Substance: FLUOROURACIL
     Dosage: 2 G, UNKNOWN
     Route: 041
     Dates: start: 20210909, end: 20210910
  4. LEUCOVORIN CALCIUM [Suspect]
     Active Substance: LEUCOVORIN CALCIUM
     Indication: Rectal cancer metastatic
     Dosage: 0.668 G, UNKNOWN
     Route: 041
     Dates: start: 20210909, end: 20210909
  5. OXALIPLATIN [Suspect]
     Active Substance: OXALIPLATIN
     Indication: Rectal cancer metastatic
     Dosage: 140 MG, UNKNOWN
     Route: 041
     Dates: start: 20210909, end: 20210909
  6. SODIUM CHLORIDE [Concomitant]
     Active Substance: SODIUM CHLORIDE
     Indication: Product used for unknown indication
     Dosage: .9 %, UNK
     Route: 042
     Dates: start: 20210909
  7. DEXTROSE [Concomitant]
     Active Substance: DEXTROSE
     Indication: Product used for unknown indication
     Dosage: 250 ML, UNK
     Route: 042
     Dates: start: 20210909

REACTIONS (1)
  - Granulocytopenia [Recovering/Resolving]

NARRATIVE: CASE EVENT DATE: 20210925
